FAERS Safety Report 7954399-X (Version None)
Quarter: 2011Q4

REPORT INFORMATION
  Report Type: 
  Country: None (occurrence: None)
  Receive Date: 20111202
  Receipt Date: 20111125
  Transmission Date: 20120403
  Serious: Yes (Other)
  Sender: FDA-Public Use
  Company Number: BR-GLAXOSMITHKLINE-A0949134A

PATIENT
  Sex: Female
  Weight: 58 kg

DRUGS (1)
  1. FLUTICASONE PROPIONATE/SALMETEROL [Suspect]
     Indication: ASTHMA
     Dosage: 1PUFF TWICE PER DAY
     Route: 055
     Dates: start: 20010101, end: 20111006

REACTIONS (2)
  - PRODUCT QUALITY ISSUE [None]
  - ASTHMA [None]
